FAERS Safety Report 9419163 (Version 1)
Quarter: 2013Q3

REPORT INFORMATION
  Report Type: Spontaneous
  Country: US (occurrence: None)
  Receive Date: 20130722
  Receipt Date: 20130722
  Transmission Date: 20140515
  Serious: No
  Sender: FDA-Public Use
  Company Number: None

PATIENT
  Age: 43 Year
  Sex: Female

DRUGS (1)
  1. HUMIRA [Suspect]
     Indication: PSORIASIS
     Dosage: 80 MG DAY-1 THEN 40MG DAY-
     Route: 058
     Dates: start: 20130624, end: 20130718

REACTIONS (2)
  - Urticaria [None]
  - Swollen tongue [None]
